FAERS Safety Report 19836346 (Version 1)
Quarter: 2021Q3

REPORT INFORMATION
  Report Type: Spontaneous
  Country: US (occurrence: US)
  Receive Date: 20210915
  Receipt Date: 20210915
  Transmission Date: 20211014
  Serious: No
  Sender: FDA-Public Use
  Company Number: US-BIOHAVEN PHARMACEUTICALS-2021BHV00982

PATIENT
  Age: 61 Year
  Sex: Female
  Weight: 104.31 kg

DRUGS (5)
  1. MAXALT [Concomitant]
     Active Substance: RIZATRIPTAN BENZOATE
  2. FLEXERIL [Concomitant]
     Active Substance: CYCLOBENZAPRINE HYDROCHLORIDE
  3. UNSPECIFIED VITAMINS [Concomitant]
     Active Substance: VITAMINS
  4. NURTEC ODT [Suspect]
     Active Substance: RIMEGEPANT SULFATE
     Dosage: 75 MG, AS NEEDED
     Route: 048
     Dates: start: 20210630
  5. NURTEC ODT [Suspect]
     Active Substance: RIMEGEPANT SULFATE
     Indication: MIGRAINE
     Dosage: 75 MG, AS NEEDED
     Route: 048
     Dates: start: 20210613, end: 20210616

REACTIONS (2)
  - Therapeutic product effect variable [Not Recovered/Not Resolved]
  - Therapeutic product effect incomplete [Not Recovered/Not Resolved]

NARRATIVE: CASE EVENT DATE: 20210630
